FAERS Safety Report 7352320-9 (Version None)
Quarter: 2011Q1

REPORT INFORMATION
  Report Type: 
  Country: None (occurrence: None)
  Receive Date: 20110309
  Receipt Date: 20110309
  Transmission Date: 20110831
  Serious: Yes (Life-Threatening)
  Sender: FDA-Public Use
  Company Number: None

PATIENT
  Age: 51 Year
  Sex: Female
  Weight: 63.5036 kg

DRUGS (2)
  1. PROPOFOL [Suspect]
     Dosage: 150MG ONCE IV
     Route: 042
     Dates: start: 20101217, end: 20101217
  2. FENTANYL [Suspect]
     Dosage: 100MCG ONCE IV
     Route: 042
     Dates: start: 20101217, end: 20101217

REACTIONS (3)
  - RESPIRATORY FAILURE [None]
  - HYPOTENSION [None]
  - BRADYCARDIA [None]
